FAERS Safety Report 23099775 (Version 1)
Quarter: 2023Q4

REPORT INFORMATION
  Report Type: Other
  Country: CA (occurrence: None)
  Receive Date: 20231024
  Receipt Date: 20231024
  Transmission Date: 20240109
  Serious: Yes (Death)
  Sender: FDA-Public Use
  Company Number: US-ROCHE-1942191

PATIENT
  Sex: Female

DRUGS (1)
  1. TRASTUZUMAB [Suspect]
     Active Substance: TRASTUZUMAB
     Indication: Breast cancer
     Route: 065

REACTIONS (1)
  - Cardiac failure congestive [Fatal]
